FAERS Safety Report 16970885 (Version 1)
Quarter: 2019Q4

REPORT INFORMATION
  Report Type: Spontaneous
  Country: JP (occurrence: JP)
  Receive Date: 20191029
  Receipt Date: 20191029
  Transmission Date: 20200122
  Serious: Yes (Death)
  Sender: FDA-Public Use
  Company Number: JP-ACTELION-A-CH2019-197266

PATIENT
  Age: 82 Year

DRUGS (2)
  1. REVATIO [Concomitant]
     Active Substance: SILDENAFIL CITRATE
  2. OPSUMIT [Suspect]
     Active Substance: MACITENTAN
     Indication: PULMONARY ARTERIAL HYPERTENSION
     Dosage: 5 MG, QD
     Route: 048
     Dates: start: 20191013, end: 20191017

REACTIONS (3)
  - Brain natriuretic peptide increased [Fatal]
  - Respiratory disorder [Fatal]
  - Cardiac failure [Fatal]

NARRATIVE: CASE EVENT DATE: 20191017
